FAERS Safety Report 7103262-5 (Version None)
Quarter: 2010Q4

REPORT INFORMATION
  Report Type: 
  Country: None (occurrence: None)
  Receive Date: 20101115
  Receipt Date: 20091207
  Transmission Date: 20110411
  Serious: No
  Sender: FDA-Public Use
  Company Number: US-KINGPHARMUSA00001-K200901546

PATIENT
  Sex: Female

DRUGS (1)
  1. LEVOXYL [Suspect]
     Dosage: UNK

REACTIONS (2)
  - ADVERSE DRUG REACTION [None]
  - MALAISE [None]
